FAERS Safety Report 5482867-1 (Version None)
Quarter: 2007Q4

REPORT INFORMATION
  Report Type: 
  Country: None (occurrence: None)
  Receive Date: 20071011
  Receipt Date: 20070928
  Transmission Date: 20080405
  Serious: Yes (Hospitalization)
  Sender: FDA-Public Use
  Company Number: MX-PFIZER INC-2007081395

PATIENT
  Sex: Male
  Weight: 123 kg

DRUGS (6)
  1. SUTENT [Suspect]
     Route: 048
     Dates: start: 20070620, end: 20070903
  2. SUTENT [Suspect]
     Route: 048
     Dates: start: 20070904, end: 20070918
  3. ALL OTHER THERAPEUTIC PRODUCTS [Concomitant]
     Route: 048
     Dates: start: 20070817, end: 20070903
  4. PREGABALIN [Concomitant]
     Route: 048
     Dates: start: 20070827
  5. TRAMADOL HCL [Concomitant]
     Route: 048
     Dates: start: 20070903
  6. DICLOFENAC SODIUM [Concomitant]
     Route: 042
     Dates: start: 20070903, end: 20070904

REACTIONS (1)
  - PERIPHERAL SENSORY NEUROPATHY [None]
